FAERS Safety Report 9089971 (Version 2)
Quarter: 2013Q3

REPORT INFORMATION
  Report Type: Spontaneous
  Country: JP (occurrence: JP)
  Receive Date: 20130201
  Receipt Date: 20130930
  Transmission Date: 20140515
  Serious: Yes (Other)
  Sender: FDA-Public Use
  Company Number: JP-009507513-1210JPN002881

PATIENT
  Age: 21 Year
  Sex: Female
  Weight: 47 kg

DRUGS (7)
  1. BRIDION [Suspect]
     Indication: NEUROMUSCULAR BLOCKADE REVERSAL
     Dosage: 200 MG, QD
     Route: 042
  2. ESLAX [Concomitant]
     Indication: NEUROMUSCULAR BLOCKADE REVERSAL
     Dosage: 40 MG, QD
     Route: 042
  3. ESLAX [Concomitant]
     Indication: ANAESTHESIA
  4. PROPOFOL [Concomitant]
     Indication: ANAESTHESIA
     Dosage: 100 MG, UNK
  5. OXYGEN [Concomitant]
     Indication: MAINTENANCE OF ANAESTHESIA
  6. SEVOFLURANE [Concomitant]
     Indication: MAINTENANCE OF ANAESTHESIA
  7. REMIFENTANIL HYDROCHLORIDE [Concomitant]
     Indication: MAINTENANCE OF ANAESTHESIA

REACTIONS (1)
  - Atrioventricular block second degree [Recovered/Resolved]
